FAERS Safety Report 6978685-5 (Version None)
Quarter: 2010Q3

REPORT INFORMATION
  Report Type: 
  Country: None (occurrence: None)
  Receive Date: 20100913
  Receipt Date: 20100909
  Transmission Date: 20110219
  Serious: Yes (Hospitalization)
  Sender: FDA-Public Use
  Company Number: A0880508A

PATIENT
  Age: 81 Year
  Sex: Female

DRUGS (6)
  1. ADVAIR DISKUS 100/50 [Suspect]
     Indication: CHRONIC OBSTRUCTIVE PULMONARY DISEASE
     Dosage: 1BLS TWICE PER DAY
     Route: 055
  2. SPIRIVA [Concomitant]
  3. SINGULAIR [Concomitant]
  4. PLAVIX [Concomitant]
  5. DIGOXIN [Concomitant]
  6. ALBUTEROL [Concomitant]

REACTIONS (1)
  - CARDIAC PACEMAKER INSERTION [None]
